FAERS Safety Report 5637090-4 (Version None)
Quarter: 2008Q1

REPORT INFORMATION
  Report Type: 
  Country: None (occurrence: None)
  Receive Date: 20080225
  Receipt Date: 20070917
  Transmission Date: 20080703
  Serious: No
  Sender: FDA-Public Use
  Company Number: US-BRISTOL-MYERS SQUIBB COMPANY-13910245

PATIENT
  Sex: Female

DRUGS (6)
  1. GLUCOPHAGE [Suspect]
     Dosage: 500 MG IN MORNING + 1000 MG IN EVENING.
  2. LEXAPRO [Concomitant]
  3. HYZAAR [Concomitant]
  4. DETROL LA [Concomitant]
  5. VYTORIN [Concomitant]
  6. PREMARIN [Concomitant]

REACTIONS (1)
  - DRUG INEFFECTIVE [None]
